FAERS Safety Report 4818200-5 (Version None)
Quarter: 2005Q3

REPORT INFORMATION
  Report Type: 
  Country: None (occurrence: None)
  Receive Date: 20050929
  Receipt Date: 20050617
  Transmission Date: 20060218
  Serious: No
  Sender: FDA-Public Use
  Company Number: 03P-163-0236934-00

PATIENT
  Age: 74 Year
  Sex: Female
  Weight: 63.5036 kg

DRUGS (20)
  1. HUMIRA [Suspect]
     Indication: RHEUMATOID ARTHRITIS
     Dosage: 40 MG, 1 IN 2 WK, SUBCUTANEOUS
     Route: 058
     Dates: start: 20030601
  2. TAMVACOR [Concomitant]
  3. COUMADIN [Concomitant]
  4. VERAPAMIL [Concomitant]
  5. NITROGLYCERIN [Concomitant]
  6. LORATADINE [Concomitant]
  7. HUMABID [Concomitant]
  8. BUDESONIDE [Concomitant]
  9. ALLERGY SHOT [Concomitant]
  10. ALENDRONATE SODIUM [Concomitant]
  11. ESOMEPRAZOLE [Concomitant]
  12. OMEPRAZOLE [Concomitant]
  13. METHOTREXATE [Concomitant]
  14. CALCIUM CITRATE [Concomitant]
  15. ZELNORM [Concomitant]
  16. MUCINEX [Concomitant]
  17. ASPIRIN [Concomitant]
  18. NIACIN [Concomitant]
  19. METFORMIN HCL [Concomitant]
  20. FLECAINIDE ACETATE [Concomitant]

REACTIONS (1)
  - INJECTION SITE IRRITATION [None]
